FAERS Safety Report 9684029 (Version 1)
Quarter: 2013Q4

REPORT INFORMATION
  Report Type: Spontaneous
  Country: US (occurrence: US)
  Receive Date: 20131112
  Receipt Date: 20131112
  Transmission Date: 20140711
  Serious: No
  Sender: FDA-Public Use
  Company Number: US-ENDO PHARMACEUTICALS INC.-HCTZ20130003

PATIENT
  Sex: Male

DRUGS (9)
  1. HYDROCHLOROTHIAZIDE TABLETS [Suspect]
     Indication: PRODUCT USED FOR UNKNOWN INDICATION
     Dosage: UNKNOWN
     Route: 048
  2. LIDODERM [Concomitant]
     Indication: MUSCLE SPASMS
     Dosage: UNKNOWN
     Route: 062
  3. OMEPRAZOLE [Concomitant]
     Indication: PRODUCT USED FOR UNKNOWN INDICATION
     Route: 065
  4. TAMSULOSIN [Concomitant]
     Indication: PRODUCT USED FOR UNKNOWN INDICATION
     Dosage: UNKNOWN
     Route: 065
  5. LIDOCAINE [Concomitant]
     Indication: MUSCLE SPASMS
     Dosage: UNKNOWN
     Route: 065
  6. MAGNESIUM [Concomitant]
     Indication: MUSCLE SPASMS
     Dosage: UNKNOWN
     Route: 065
  7. MEDICINAL MARIJUANA [Concomitant]
     Indication: PRODUCT USED FOR UNKNOWN INDICATION
     Dosage: UNKNOWN
     Route: 065
  8. ARMOUR THYROID [Concomitant]
     Indication: PRODUCT USED FOR UNKNOWN INDICATION
     Dosage: UNKNOWN
     Route: 065
  9. VITAMIN D [Concomitant]
     Indication: MUSCLE SPASMS
     Dosage: UNKNOWN
     Route: 065

REACTIONS (2)
  - Skin ulcer haemorrhage [Recovered/Resolved]
  - Photosensitivity reaction [Recovered/Resolved]
